FAERS Safety Report 25184073 (Version 1)
Quarter: 2025Q2

REPORT INFORMATION
  Report Type: Spontaneous
  Country: FR (occurrence: FR)
  Receive Date: 20250410
  Receipt Date: 20250410
  Transmission Date: 20250717
  Serious: Yes (Life-Threatening, Other)
  Sender: SANOFI AVENTIS
  Company Number: None

PATIENT
  Age: 58 Year
  Sex: Male

DRUGS (2)
  1. CAMPATH [Suspect]
     Active Substance: ALEMTUZUMAB
     Indication: Peripheral T-cell lymphoma unspecified stage IV
     Dosage: 30 MG, QW
     Route: 042
     Dates: start: 20250114, end: 20250129
  2. CAMPATH [Suspect]
     Active Substance: ALEMTUZUMAB
     Dosage: 3 MG, QW (FIRST WEEK)
     Route: 042

REACTIONS (1)
  - Acute polyneuropathy [Recovering/Resolving]

NARRATIVE: CASE EVENT DATE: 20250205
